FAERS Safety Report 19472136 (Version 1)
Quarter: 2021Q2

REPORT INFORMATION
  Report Type: Spontaneous
  Country: US (occurrence: US)
  Receive Date: 20210629
  Receipt Date: 20210629
  Transmission Date: 20210717
  Serious: Yes (Other)
  Sender: FDA-Public Use
  Company Number: None

PATIENT
  Age: 35 Year
  Sex: Female
  Weight: 77.11 kg

DRUGS (2)
  1. GABAPENTIN 100 MG [Suspect]
     Active Substance: GABAPENTIN
     Indication: COMPLEX REGIONAL PAIN SYNDROME
     Route: 048
     Dates: start: 20210616, end: 20210628
  2. GABAPENTIN 100 MG [Suspect]
     Active Substance: GABAPENTIN
     Indication: COMPLEX REGIONAL PAIN SYNDROME
     Dates: start: 20170509, end: 20170719

REACTIONS (7)
  - Nausea [None]
  - Dizziness [None]
  - Flushing [None]
  - Depressed level of consciousness [None]
  - Neuralgia [None]
  - Sedation [None]
  - Condition aggravated [None]

NARRATIVE: CASE EVENT DATE: 20210628
